FAERS Safety Report 9424501 (Version 1)
Quarter: 2013Q3

REPORT INFORMATION
  Report Type: Spontaneous
  Country: HU (occurrence: None)
  Receive Date: 20130725
  Receipt Date: 20130725
  Transmission Date: 20140515
  Serious: No
  Sender: FDA-Public Use
  Company Number: 1307HUN006118

PATIENT
  Age: 35 Year
  Sex: Female

DRUGS (5)
  1. CEDAX [Suspect]
     Indication: URINARY TRACT INFECTION
     Route: 048
     Dates: start: 20130610, end: 20130614
  2. AUGMENTIN [Suspect]
     Indication: INFECTION
     Dates: start: 20130615
  3. LIPDIL SUPRA (FENOFIBRATE) [Concomitant]
  4. ROSUVASTATIN SANDOZ (ROSUVASTATIN CALCIUM) [Concomitant]
  5. MILURIT (ALLOPURINOL) [Concomitant]

REACTIONS (3)
  - Hypersensitivity [None]
  - Lymphadenopathy [None]
  - Lymph node pain [None]
